FAERS Safety Report 6964727-X (Version None)
Quarter: 2010Q3

REPORT INFORMATION
  Report Type: 
  Country: None (occurrence: None)
  Receive Date: 20100903
  Receipt Date: 20100827
  Transmission Date: 20110219
  Serious: Yes (Death)
  Sender: FDA-Public Use
  Company Number: DE-CUBIST-2010S1000841

PATIENT
  Age: 57 Year
  Sex: Male
  Weight: 121 kg

DRUGS (4)
  1. CUBICIN [Suspect]
     Indication: ABSCESS
     Route: 042
     Dates: start: 20100205, end: 20100207
  2. CUBICIN [Suspect]
     Indication: CELLULITIS
     Route: 042
     Dates: start: 20100205, end: 20100207
  3. CUBICIN [Suspect]
     Indication: SEPSIS
     Route: 042
     Dates: start: 20100205, end: 20100207
  4. CUBICIN [Suspect]
     Indication: STAPHYLOCOCCAL INFECTION
     Route: 042
     Dates: start: 20100205, end: 20100207

REACTIONS (2)
  - MULTI-ORGAN FAILURE [None]
  - SEPTIC SHOCK [None]
